FAERS Safety Report 24203848 (Version 1)
Quarter: 2024Q3

REPORT INFORMATION
  Report Type: Spontaneous
  Country: US (occurrence: US)
  Receive Date: 20240813
  Receipt Date: 20240813
  Transmission Date: 20241017
  Serious: Yes (Other)
  Sender: ROCHE
  Company Number: US-ROCHE-10000049559

PATIENT
  Sex: Female

DRUGS (1)
  1. XOLAIR [Suspect]
     Active Substance: OMALIZUMAB
     Indication: Product used for unknown indication
     Route: 058
     Dates: start: 20231023

REACTIONS (5)
  - Urticaria [Unknown]
  - Lip swelling [Unknown]
  - Pain [Unknown]
  - Blood urine present [Unknown]
  - Breast cancer [Not Recovered/Not Resolved]
